FAERS Safety Report 11689491 (Version 1)
Quarter: 2015Q4

REPORT INFORMATION
  Report Type: Spontaneous
  Country: US (occurrence: US)
  Receive Date: 20151102
  Receipt Date: 20151102
  Transmission Date: 20160304
  Serious: Yes (Other)
  Sender: FDA-Public Use
  Company Number: US-PIERRE FABRE-1043629

PATIENT
  Age: 7 Year
  Sex: Male

DRUGS (1)
  1. HEMANGEOL [Suspect]
     Active Substance: PROPRANOLOL HYDROCHLORIDE
     Indication: PRODUCT USED FOR UNKNOWN INDICATION
     Route: 048
     Dates: start: 20150926, end: 20150926

REACTIONS (3)
  - Seizure like phenomena [Unknown]
  - Psychomotor hyperactivity [Unknown]
  - Off label use [Unknown]

NARRATIVE: CASE EVENT DATE: 20150926
